FAERS Safety Report 5262141-9 (Version None)
Quarter: 2007Q1

REPORT INFORMATION
  Report Type: 
  Country: None (occurrence: None)
  Receive Date: 20070311
  Receipt Date: 20070228
  Transmission Date: 20070707
  Serious: Yes (Other)
  Sender: FDA-Public Use
  Company Number: 2006UW11168

PATIENT
  Age: 39 Year
  Sex: Female
  Weight: 80 kg

DRUGS (4)
  1. SEROQUEL [Suspect]
     Indication: DEPRESSION
     Route: 048
     Dates: start: 20000101, end: 20050101
  2. SEROQUEL [Suspect]
     Indication: INSOMNIA
     Route: 048
     Dates: start: 20000101, end: 20050101
  3. ZYPREXA [Suspect]
     Dates: start: 20000101, end: 20050101
  4. ABILIFY [Concomitant]
     Dates: start: 20060801

REACTIONS (3)
  - BLOOD CHOLESTEROL INCREASED [None]
  - HYPERLIPIDAEMIA [None]
  - PANCREATITIS [None]
